FAERS Safety Report 22600386 (Version 1)
Quarter: 2023Q2

REPORT INFORMATION
  Report Type: Spontaneous
  Country: US (occurrence: US)
  Receive Date: 20230614
  Receipt Date: 20230614
  Transmission Date: 20230722
  Serious: Yes (Other)
  Sender: FDA-Public Use
  Company Number: US-BRISTOL-MYERS SQUIBB COMPANY-2023-082684

PATIENT
  Age: 65 Year
  Sex: Female

DRUGS (3)
  1. ORENCIA [Suspect]
     Active Substance: ABATACEPT
     Indication: Rheumatoid arthritis
     Route: 058
     Dates: start: 202201
  2. ORENCIA [Suspect]
     Active Substance: ABATACEPT
     Indication: Polyarthritis
  3. ORENCIA [Suspect]
     Active Substance: ABATACEPT
     Indication: Osteoarthritis

REACTIONS (4)
  - Cataract [Unknown]
  - Gastric disorder [Unknown]
  - Glaucoma [Unknown]
  - Rheumatoid arthritis [Unknown]
